FAERS Safety Report 4863640-1 (Version None)
Quarter: 2005Q4

REPORT INFORMATION
  Report Type: 
  Country: None (occurrence: None)
  Receive Date: 20051222
  Receipt Date: 20050606
  Transmission Date: 20060501
  Serious: No
  Sender: FDA-Public Use
  Company Number: US-GLAXOSMITHKLINE-A0561399A

PATIENT
  Sex: Female

DRUGS (4)
  1. FLONASE [Suspect]
     Dosage: 2SPR TWICE PER DAY
     Route: 045
     Dates: start: 20031001
  2. ZYRTEC [Concomitant]
  3. PREMARIN [Concomitant]
  4. IMITREX [Concomitant]

REACTIONS (1)
  - POSTNASAL DRIP [None]
